FAERS Safety Report 18145040 (Version 1)
Quarter: 2020Q3

REPORT INFORMATION
  Report Type: Spontaneous
  Country: US (occurrence: US)
  Receive Date: 20200813
  Receipt Date: 20200813
  Transmission Date: 20201103
  Serious: Yes (Other)
  Sender: FDA-Public Use
  Company Number: US-PFIZER INC-2020310477

PATIENT
  Age: 71 Year
  Sex: Female
  Weight: 136 kg

DRUGS (1)
  1. PHENYTOIN SODIUM. [Suspect]
     Active Substance: PHENYTOIN SODIUM
     Dosage: 300 MG, DAILY (1 IN THE MORNING 2 AT NIGHT 100MG)

REACTIONS (2)
  - Seizure [Unknown]
  - Throat tightness [Unknown]
